FAERS Safety Report 17004987 (Version 1)
Quarter: 2019Q4

REPORT INFORMATION
  Report Type: Spontaneous
  Country: US (occurrence: US)
  Receive Date: 20190926
  Receipt Date: 20190926
  Transmission Date: 20200122
  Serious: No
  Sender: FDA-Public Use
  Company Number: None

PATIENT
  Sex: Female

DRUGS (1)
  1. AMITRIPTYLINE [Suspect]
     Active Substance: AMITRIPTYLINE

REACTIONS (7)
  - Feeling abnormal [None]
  - Hypersomnia [None]
  - Product dispensing error [None]
  - Somnolence [None]
  - Speech disorder [None]
  - Transcription medication error [None]
  - Incorrect dosage administered [None]
